FAERS Safety Report 10052945 (Version 1)
Quarter: 2014Q2

REPORT INFORMATION
  Report Type: Spontaneous
  Country: NL (occurrence: NL)
  Receive Date: 20140402
  Receipt Date: 20140402
  Transmission Date: 20141212
  Serious: Yes (Other)
  Sender: FDA-Public Use
  Company Number: NL-WATSON-2014-05892

PATIENT
  Age: 39 Year
  Sex: Female

DRUGS (1)
  1. METRONIDAZOLE [Suspect]
     Indication: PARASITIC GASTROENTERITIS
     Dosage: 500 MG, TID; (3 KEER PER DAG 1.5 STUK(S)); 500 MG
     Route: 048
     Dates: start: 20140306

REACTIONS (2)
  - Dizziness [Unknown]
  - Vision blurred [Unknown]
